FAERS Safety Report 8129729-9 (Version None)
Quarter: 2012Q1

REPORT INFORMATION
  Report Type: 
  Country: None (occurrence: None)
  Receive Date: 20120210
  Receipt Date: 20120130
  Transmission Date: 20120608
  Serious: Yes (Hospitalization)
  Sender: FDA-Public Use
  Company Number: DE-MYLANLABS-2012S1000065

PATIENT
  Age: 27 Year
  Sex: Male
  Weight: 80 kg

DRUGS (2)
  1. DOXEPIN HCL [Suspect]
     Route: 048
     Dates: start: 20111231, end: 20111231
  2. COCAINE [Suspect]

REACTIONS (5)
  - TACHYCARDIA [None]
  - COMA [None]
  - SOMNOLENCE [None]
  - INTENTIONAL OVERDOSE [None]
  - DRUG ABUSE [None]
